FAERS Safety Report 6127318-9 (Version None)
Quarter: 2009Q1

REPORT INFORMATION
  Report Type: 
  Country: None (occurrence: None)
  Receive Date: 20090319
  Receipt Date: 20090309
  Transmission Date: 20090719
  Serious: Yes (Other)
  Sender: FDA-Public Use
  Company Number: TPA2009A00388

PATIENT

DRUGS (2)
  1. ACTOS [Suspect]
     Indication: DRUG USE FOR UNKNOWN INDICATION
     Dosage: PER ORAL
     Route: 048
  2. UNKNOWN MEDICATIONS (ALL OTHER PRODUCTS) [Concomitant]

REACTIONS (1)
  - CEREBROVASCULAR ACCIDENT [None]
